FAERS Safety Report 11187302 (Version 1)
Quarter: 2015Q2

REPORT INFORMATION
  Report Type: Spontaneous
  Country: US (occurrence: US)
  Receive Date: 20150615
  Receipt Date: 20150615
  Transmission Date: 20150821
  Serious: Yes (Other)
  Sender: FDA-Public Use
  Company Number: US-JNJFOC-20150511497

PATIENT
  Sex: Male

DRUGS (1)
  1. XARELTO [Suspect]
     Active Substance: RIVAROXABAN
     Indication: PRODUCT USED FOR UNKNOWN INDICATION
     Route: 048

REACTIONS (6)
  - Skin ulcer haemorrhage [Recovered/Resolved]
  - Haematochezia [Unknown]
  - Swelling [Unknown]
  - Rash [Not Recovered/Not Resolved]
  - Epistaxis [Unknown]
  - Abdominal discomfort [Unknown]
